FAERS Safety Report 12450458 (Version 2)
Quarter: 2016Q2

REPORT INFORMATION
  Report Type: Other
  Country: GB (occurrence: GB)
  Receive Date: 20160609
  Receipt Date: 20160609
  Transmission Date: 20160815
  Serious: Yes (Other)
  Sender: FDA-Public Use
  Company Number: GB-CIPLA LTD.-2016GB06366

PATIENT

DRUGS (3)
  1. AMLODIPINE [Suspect]
     Active Substance: AMLODIPINE BESYLATE
     Dosage: UNK
     Route: 065
     Dates: start: 20150728
  2. SILDENAFIL. [Concomitant]
     Active Substance: SILDENAFIL
     Dosage: 1 DF, QD, APPROXIMATELY ONE HOUR BEFORE
     Route: 065
     Dates: start: 20160309
  3. LISINOPRIL. [Concomitant]
     Active Substance: LISINOPRIL
     Dosage: 1 DF, QD
     Route: 065
     Dates: start: 20150728

REACTIONS (1)
  - Increased tendency to bruise [Recovering/Resolving]
